FAERS Safety Report 8349302-7 (Version None)
Quarter: 2012Q2

REPORT INFORMATION
  Report Type: 
  Country: None (occurrence: None)
  Receive Date: 20120508
  Receipt Date: 20120508
  Transmission Date: 20120825
  Serious: Yes (Life-Threatening, Hospitalization)
  Sender: FDA-Public Use
  Company Number: None

PATIENT
  Age: 68 Year
  Sex: Female
  Weight: 63.5036 kg

DRUGS (2)
  1. ACYCLOVIR [Suspect]
     Dosage: QTY 140 / 200 MG 1 / 4X DAILY
  2. NAPROXEN [Suspect]
     Indication: ARTHRITIS
     Dosage: QTY 30 / 500MG 1/ 2X/ FOOD ?  NAPROXEN 13-15 (DEC)

REACTIONS (7)
  - SPEECH DISORDER [None]
  - UNEVALUABLE EVENT [None]
  - NO THERAPEUTIC RESPONSE [None]
  - RENAL DISORDER [None]
  - HERPES ZOSTER [None]
  - GASTRIC ULCER [None]
  - PHARYNGEAL ULCERATION [None]
